FAERS Safety Report 21874667 (Version 1)
Quarter: 2023Q1

REPORT INFORMATION
  Report Type: Report from Study
  Country: ID (occurrence: None)
  Receive Date: 20230117
  Receipt Date: 20230117
  Transmission Date: 20230417
  Serious: Yes (Death)
  Sender: FDA-Public Use
  Company Number: 2023A009131

PATIENT
  Age: 16291 Day
  Sex: Female

DRUGS (2)
  1. FASLODEX [Suspect]
     Active Substance: FULVESTRANT
     Indication: Breast cancer metastatic
     Dosage: THE PATIENT HAS RECEIVED FASLODEX INJECTION FOR 8X TIMES
     Route: 030
     Dates: start: 20220409
  2. FASLODEX [Suspect]
     Active Substance: FULVESTRANT
     Indication: Hormone receptor positive breast cancer
     Dosage: THE PATIENT HAS RECEIVED FASLODEX INJECTION FOR 8X TIMES
     Route: 030
     Dates: start: 20220409

REACTIONS (1)
  - Death [Fatal]

NARRATIVE: CASE EVENT DATE: 20221205
